FAERS Safety Report 7762436-0 (Version None)
Quarter: 2011Q3

REPORT INFORMATION
  Report Type: 
  Country: None (occurrence: None)
  Receive Date: 20110920
  Receipt Date: 20110912
  Transmission Date: 20111222
  Serious: Yes (Hospitalization)
  Sender: FDA-Public Use
  Company Number: CL-SANOFI-AVENTIS-2011SA060100

PATIENT
  Age: 54 Year
  Sex: Female
  Weight: 48 kg

DRUGS (4)
  1. INSULIN GLARGINE [Suspect]
     Route: 058
     Dates: start: 20110906, end: 20110911
  2. INSULIN GLARGINE [Suspect]
     Route: 058
     Dates: start: 20110912
  3. INSULIN GLULISINE [Concomitant]
     Indication: TYPE 1 DIABETES MELLITUS
     Route: 058
     Dates: start: 20080901
  4. INSULIN GLARGINE [Suspect]
     Indication: TYPE 1 DIABETES MELLITUS
     Route: 058
     Dates: start: 20080923, end: 20110905

REACTIONS (1)
  - DIABETIC KETOACIDOSIS [None]
